FAERS Safety Report 7163912-4 (Version None)
Quarter: 2010Q4

REPORT INFORMATION
  Report Type: 
  Country: None (occurrence: None)
  Receive Date: 20101215
  Receipt Date: 20101209
  Transmission Date: 20110411
  Serious: Yes (Hospitalization)
  Sender: FDA-Public Use
  Company Number: IT-PFIZER INC-2010170249

PATIENT
  Age: 6 Year
  Sex: Male

DRUGS (3)
  1. GENOTROPIN [Suspect]
     Indication: HYPOPITUITARISM
     Dosage: 0.6 MG, CYCLIC
     Route: 058
     Dates: start: 20090403, end: 20101110
  2. EUTIROX [Concomitant]
     Dosage: 37.5 MG, UNK
     Route: 048
  3. CORTONE [Concomitant]
     Dosage: 6.2 MG, UNK
     Route: 048

REACTIONS (1)
  - HENOCH-SCHONLEIN PURPURA [None]
